FAERS Safety Report 8581513-8 (Version None)
Quarter: 2012Q3

REPORT INFORMATION
  Report Type: 
  Country: None (occurrence: None)
  Receive Date: 20120809
  Receipt Date: 20120730
  Transmission Date: 20120928
  Serious: No
  Sender: FDA-Public Use
  Company Number: FR-JNJFOC-20120412788

PATIENT
  Sex: Male
  Weight: 75 kg

DRUGS (2)
  1. STELARA [Suspect]
     Indication: PSORIASIS
     Route: 058
     Dates: start: 20120319, end: 20120326
  2. RIFAMPIN AND ISONIAZID [Suspect]
     Indication: LATENT TUBERCULOSIS
     Route: 048
     Dates: start: 20120120, end: 20120314

REACTIONS (1)
  - CYTOLYTIC HEPATITIS [None]
